FAERS Safety Report 7395651-9 (Version None)
Quarter: 2011Q2

REPORT INFORMATION
  Report Type: 
  Country: None (occurrence: None)
  Receive Date: 20110405
  Receipt Date: 20110329
  Transmission Date: 20111010
  Serious: Yes (Hospitalization, Other)
  Sender: FDA-Public Use
  Company Number: US-TEVA-207432USA

PATIENT
  Sex: Male

DRUGS (1)
  1. AMPHETAMINE SALT COMBO TABLET 5MG, 7.5MG, 10MG, 12.5MG, 15MG, 20MG, 30 [Suspect]
     Indication: ATTENTION DEFICIT/HYPERACTIVITY DISORDER
     Route: 048
     Dates: end: 20090804

REACTIONS (15)
  - SUICIDAL IDEATION [None]
  - PARANOIA [None]
  - CONFUSIONAL STATE [None]
  - DECREASED APPETITE [None]
  - EUPHORIC MOOD [None]
  - PSYCHOTIC DISORDER [None]
  - MENTAL DISORDER [None]
  - AGITATION [None]
  - HOMICIDAL IDEATION [None]
  - INSOMNIA [None]
  - HALLUCINATION, VISUAL [None]
  - SCHIZOPHRENIA [None]
  - AGGRESSION [None]
  - WEIGHT DECREASED [None]
  - MANIA [None]
